FAERS Safety Report 4718985-2 (Version None)
Quarter: 2005Q3

REPORT INFORMATION
  Report Type: 
  Country: None (occurrence: None)
  Receive Date: 20050719
  Receipt Date: 20050610
  Transmission Date: 20060218
  Serious: Yes (Hospitalization)
  Sender: FDA-Public Use
  Company Number: JP_050706971

PATIENT
  Age: 58 Year
  Sex: Female
  Weight: 56 kg

DRUGS (3)
  1. ZYPREXA [Suspect]
     Indication: SCHIZOPHRENIA
     Dosage: 5 MG DAY
     Route: 048
     Dates: start: 20040727
  2. NITRAZEPAM [Concomitant]
  3. TINELAC               (SENNOSIDE A+B) [Concomitant]

REACTIONS (3)
  - DEATH OF PARENT [None]
  - IRRITABILITY [None]
  - TREATMENT NONCOMPLIANCE [None]
